FAERS Safety Report 4778384-4 (Version None)
Quarter: 2005Q3

REPORT INFORMATION
  Report Type: 
  Country: None (occurrence: None)
  Receive Date: 20050926
  Receipt Date: 20050602
  Transmission Date: 20060218
  Serious: Yes (Other)
  Sender: FDA-Public Use
  Company Number: FR-GLAXOSMITHKLINE-B0384845A

PATIENT
  Sex: Female

DRUGS (3)
  1. AVANDAMET [Suspect]
     Dosage: 2TAB TWICE PER DAY
     Route: 048
  2. AUGMENTIN [Concomitant]
     Route: 048
  3. CIFLOX [Concomitant]
     Route: 065

REACTIONS (7)
  - CARDIAC FAILURE [None]
  - FLUID RETENTION [None]
  - INFLAMMATION [None]
  - LUNG DISORDER [None]
  - NORMOCHROMIC NORMOCYTIC ANAEMIA [None]
  - PLEURAL EFFUSION [None]
  - WEIGHT DECREASED [None]
